FAERS Safety Report 10493096 (Version 1)
Quarter: 2014Q4

REPORT INFORMATION
  Report Type: Spontaneous
  Country: US (occurrence: US)
  Receive Date: 20141002
  Receipt Date: 20141002
  Transmission Date: 20150528
  Serious: No
  Sender: FDA-Public Use
  Company Number: US-GLAXOSMITHKLINE-A1079007A

PATIENT
  Age: 50 Year
  Sex: Female

DRUGS (19)
  1. ZOFRAN [Concomitant]
     Active Substance: ONDANSETRON HYDROCHLORIDE
  2. PROVENTIL NEBULIZER [Concomitant]
  3. SPIRIVA [Concomitant]
     Active Substance: TIOTROPIUM BROMIDE MONOHYDRATE
  4. PROVENTIL [Concomitant]
     Active Substance: ALBUTEROL
  5. HYDROCODONE [Concomitant]
     Active Substance: HYDROCODONE
  6. ADVAIR HFA [Suspect]
     Active Substance: FLUTICASONE PROPIONATE\SALMETEROL XINAFOATE
     Indication: CHRONIC OBSTRUCTIVE PULMONARY DISEASE
     Dosage: 1PUFF TWICE PER DAY
     Route: 055
  7. TAMOXIFEN [Concomitant]
     Active Substance: TAMOXIFEN
  8. ZOLOFT [Concomitant]
     Active Substance: SERTRALINE HYDROCHLORIDE
  9. METFORMIN [Concomitant]
     Active Substance: METFORMIN HYDROCHLORIDE
  10. UNKNOWN MEDICATION [Concomitant]
     Active Substance: UNSPECIFIED INGREDIENT
  11. CRESTOR [Concomitant]
     Active Substance: ROSUVASTATIN CALCIUM
  12. LEVOTHYROXINE [Concomitant]
     Active Substance: LEVOTHYROXINE
  13. TAMSULOSIN [Concomitant]
     Active Substance: TAMSULOSIN
  14. LAMICTAL [Concomitant]
     Active Substance: LAMOTRIGINE
  15. XANAX [Concomitant]
     Active Substance: ALPRAZOLAM
  16. ROBAXIN [Concomitant]
     Active Substance: METHOCARBAMOL
  17. VITAMIN D [Concomitant]
     Active Substance: CHOLECALCIFEROL
  18. LITHIUM [Concomitant]
     Active Substance: LITHIUM CARBONATE
  19. LISINOPRIL. [Concomitant]
     Active Substance: LISINOPRIL

REACTIONS (4)
  - Lung disorder [Not Recovered/Not Resolved]
  - Wheezing [Unknown]
  - Condition aggravated [Unknown]
  - Dysphonia [Unknown]

NARRATIVE: CASE EVENT DATE: 201404
